FAERS Safety Report 9818333 (Version 1)
Quarter: 2014Q1

REPORT INFORMATION
  Report Type: Spontaneous
  Country: US (occurrence: US)
  Receive Date: 20140115
  Receipt Date: 20140115
  Transmission Date: 20141002
  Serious: No
  Sender: FDA-Public Use
  Company Number: US-PFIZER INC-2014010234

PATIENT
  Age: 57 Year
  Sex: Female
  Weight: 61.22 kg

DRUGS (3)
  1. ADVIL PM [Suspect]
     Indication: HEADACHE
     Dosage: UNK, AS NEEDED
  2. ADVIL PM [Suspect]
     Indication: PYREXIA
  3. ADVIL PM [Suspect]
     Indication: PAIN

REACTIONS (2)
  - Off label use [Unknown]
  - Somnolence [Unknown]
